FAERS Safety Report 12395119 (Version 10)
Quarter: 2018Q4

REPORT INFORMATION
  Report Type: Spontaneous
  Country: US (occurrence: US)
  Receive Date: 20160523
  Receipt Date: 20181217
  Transmission Date: 20190204
  Serious: Yes (Hospitalization, Other)
  Sender: FDA-Public Use
  Company Number: US-ACTELION-A-US2015-119888

PATIENT
  Age: 46 Year
  Sex: Male
  Weight: 63.49 kg

DRUGS (4)
  1. VELETRI [Suspect]
     Active Substance: EPOPROSTENOL
     Indication: PULMONARY ARTERIAL HYPERTENSION
     Dosage: 107 NG/KG, PER MIN
     Route: 042
     Dates: start: 20150217
  2. REVATIO [Concomitant]
     Active Substance: SILDENAFIL CITRATE
  3. COUMADIN [Concomitant]
     Active Substance: WARFARIN SODIUM
  4. OPSUMIT [Suspect]
     Active Substance: MACITENTAN
     Indication: PULMONARY ARTERIAL HYPERTENSION
     Route: 048

REACTIONS (10)
  - Pulmonary embolism [Unknown]
  - Diarrhoea [Unknown]
  - Bronchitis [Unknown]
  - Gallbladder disorder [Unknown]
  - Atrial fibrillation [Unknown]
  - Upper respiratory tract infection [Unknown]
  - Pain in jaw [Unknown]
  - Cholecystectomy [Unknown]
  - Sinusitis [Unknown]
  - Dyspnoea exertional [Unknown]

NARRATIVE: CASE EVENT DATE: 20171004
